FAERS Safety Report 16938627 (Version 1)
Quarter: 2019Q4

REPORT INFORMATION
  Report Type: Spontaneous
  Country: US (occurrence: US)
  Receive Date: 20190827
  Receipt Date: 20190827
  Transmission Date: 20200122
  Serious: Yes (Disabling, Other)
  Sender: FDA-Public Use
  Company Number: None

PATIENT
  Age: 31 Year
  Sex: Female
  Weight: 96.62 kg

DRUGS (7)
  1. MULTIVITAMIN [Concomitant]
     Active Substance: VITAMINS
  2. RETIN-A [Concomitant]
     Active Substance: TRETINOIN
  3. VITAMIN D [Concomitant]
     Active Substance: VITAMIN D NOS
  4. TOPAMAX [Suspect]
     Active Substance: TOPIRAMATE
     Indication: MIGRAINE PROPHYLAXIS
     Route: 048
     Dates: start: 20190723, end: 20190822
  5. ORILISSA [Concomitant]
     Active Substance: ELAGOLIX SODIUM
  6. SUMATRIPTAN. [Concomitant]
     Active Substance: SUMATRIPTAN
  7. CALCIUM [Concomitant]
     Active Substance: CALCIUM

REACTIONS (2)
  - Hemiparesis [None]
  - Neuropathy peripheral [None]

NARRATIVE: CASE EVENT DATE: 20190806
